FAERS Safety Report 21993403 (Version 1)
Quarter: 2023Q1

REPORT INFORMATION
  Report Type: Spontaneous
  Country: US (occurrence: US)
  Receive Date: 20230215
  Receipt Date: 20230215
  Transmission Date: 20230418
  Serious: Yes (Hospitalization, Other)
  Sender: FDA-Public Use
  Company Number: US-ENDO PHARMACEUTICALS INC-2023-000836

PATIENT
  Age: 19 Year
  Sex: Male

DRUGS (2)
  1. IBUPROFEN [Suspect]
     Active Substance: IBUPROFEN
     Indication: Product used for unknown indication
     Dosage: 90 G, UNKNOWN (450 TABLETS; 1,200 MG/KG)
     Route: 048
  2. ALCOHOL [Suspect]
     Active Substance: ALCOHOL
     Indication: Product used for unknown indication
     Dosage: 1180 ML, UNKNOWN (1,180 ML BEER )
     Route: 048

REACTIONS (7)
  - Coma [Recovered/Resolved]
  - Hypothermia [Recovered/Resolved]
  - Renal tubular necrosis [Recovered/Resolved]
  - Lactic acidosis [Recovered/Resolved]
  - Intentional overdose [Unknown]
  - Muscle twitching [Unknown]
  - Tachycardia [Recovered/Resolved]
